FAERS Safety Report 4746408-6 (Version None)
Quarter: 2005Q3

REPORT INFORMATION
  Report Type: 
  Country: None (occurrence: None)
  Receive Date: 20050815
  Receipt Date: 20050729
  Transmission Date: 20060218
  Serious: Yes (Other)
  Sender: FDA-Public Use
  Company Number: CA_050408075

PATIENT
  Age: 77 Year
  Sex: Female
  Weight: 46 kg

DRUGS (13)
  1. FORTEO [Suspect]
     Indication: OSTEOPOROSIS
     Dosage: 20 UG
     Dates: start: 20041115
  2. METHOTREXATE [Concomitant]
  3. AREDIA [Concomitant]
  4. SOTALOL HCL [Concomitant]
  5. NEO-GILURYTHMAL (PRAJMALIUM BITARTRATE) [Concomitant]
  6. FOLIC ACID [Concomitant]
  7. LOSEC (OMEPRAZOLE SODIUM) [Concomitant]
  8. IMOVANE (ZOPICLONE) [Concomitant]
  9. LIPITOR [Concomitant]
  10. ASPIRIN [Concomitant]
  11. CALCIUM GLUCONATE [Concomitant]
  12. VITAMIN D [Concomitant]
  13. DAILY MULTIVITAMIN [Concomitant]

REACTIONS (2)
  - PATHOLOGICAL FRACTURE [None]
  - UPPER LIMB FRACTURE [None]
